FAERS Safety Report 23541225 (Version 1)
Quarter: 2024Q1

REPORT INFORMATION
  Report Type: Spontaneous
  Country: US (occurrence: US)
  Receive Date: 20240219
  Receipt Date: 20240219
  Transmission Date: 20240410
  Serious: No
  Sender: FDA-Public Use
  Company Number: US-Stemline Therapeutics, Inc.-2023ST005051

PATIENT
  Age: 36 Year
  Sex: Female

DRUGS (3)
  1. ORSERDU [Suspect]
     Active Substance: ELACESTRANT
     Indication: Product used for unknown indication
     Dosage: 345 MG ONCE A DAY
     Route: 048
     Dates: start: 20231114
  2. IMODIUM [Suspect]
     Active Substance: LOPERAMIDE HYDROCHLORIDE
     Indication: Product used for unknown indication
  3. VERZENIO [Suspect]
     Active Substance: ABEMACICLIB
     Indication: Product used for unknown indication

REACTIONS (17)
  - Flatulence [Unknown]
  - Abdominal distension [Unknown]
  - Weight decreased [Unknown]
  - Red blood cell count decreased [Unknown]
  - Pallor [Unknown]
  - Skin exfoliation [Unknown]
  - Dehydration [Unknown]
  - Dyspepsia [Unknown]
  - Abdominal discomfort [Not Recovered/Not Resolved]
  - Diarrhoea [Not Recovered/Not Resolved]
  - Fatigue [Not Recovered/Not Resolved]
  - Haemoglobin decreased [Unknown]
  - Hot flush [Unknown]
  - Abdominal pain upper [Unknown]
  - Constipation [Unknown]
  - Nausea [Unknown]
  - Alopecia [Unknown]
